FAERS Safety Report 12396468 (Version 1)
Quarter: 2016Q2

REPORT INFORMATION
  Report Type: Spontaneous
  Country: US (occurrence: US)
  Receive Date: 20160524
  Receipt Date: 20160524
  Transmission Date: 20160815
  Serious: Yes (Hospitalization, Other)
  Sender: FDA-Public Use
  Company Number: US-SHIRE-US201606116

PATIENT
  Sex: Female

DRUGS (1)
  1. LIALDA [Suspect]
     Active Substance: MESALAMINE
     Indication: COLITIS
     Dosage: 2.4 G, 1X/DAY:QD
     Route: 048

REACTIONS (4)
  - Clostridium difficile infection [Unknown]
  - Alopecia [Unknown]
  - Arterial disorder [Unknown]
  - Urinary tract infection [Unknown]
